FAERS Safety Report 14431790 (Version 1)
Quarter: 2018Q1

REPORT INFORMATION
  Report Type: Report from Study
  Country: US (occurrence: US)
  Receive Date: 20180124
  Receipt Date: 20180124
  Transmission Date: 20180509
  Serious: No
  Sender: FDA-Public Use
  Company Number: US-AMGEN-USASL2018009077

PATIENT
  Age: 71 Year
  Sex: Male

DRUGS (1)
  1. ENBREL [Suspect]
     Active Substance: ETANERCEPT
     Indication: PSORIATIC ARTHROPATHY
     Dosage: 50 MG, UNK (EVERY 12 TO 14 DAYS)
     Route: 065

REACTIONS (5)
  - Off label use [Unknown]
  - Asthenia [Unknown]
  - Hypertension [Unknown]
  - Anxiety [Unknown]
  - Emotional disorder [Unknown]

NARRATIVE: CASE EVENT DATE: 201711
